FAERS Safety Report 19856213 (Version 2)
Quarter: 2022Q4

REPORT INFORMATION
  Report Type: Spontaneous
  Country: DE (occurrence: DE)
  Receive Date: 20210920
  Receipt Date: 20221102
  Transmission Date: 20230113
  Serious: Yes (Hospitalization, Other)
  Sender: FDA-Public Use
  Company Number: DE-ADRED-07120-01

PATIENT
  Age: 71 Year
  Sex: Female

DRUGS (8)
  1. PREDNISOLONE [Suspect]
     Active Substance: PREDNISOLONE
     Indication: Product used for unknown indication
     Dosage: 20 MILLIGRAM DAILY; 1-1-0-0
     Route: 065
  2. ANASTROZOLE [Concomitant]
     Active Substance: ANASTROZOLE
     Indication: Product used for unknown indication
     Dosage: 1 DOSAGE FORMS DAILY; 1-0-0-0
  3. Colecalciferol (Vitamin D)/Natriumfluorid [Concomitant]
     Indication: Product used for unknown indication
     Dosage: 20000 IU, SCHEME
  4. PANTOPRAZOLE SODIUM [Concomitant]
     Active Substance: PANTOPRAZOLE SODIUM
     Indication: Product used for unknown indication
     Dosage: 40 MILLIGRAM DAILY; 1-0-0-0
  5. FORMOTEROL [Concomitant]
     Active Substance: FORMOTEROL
     Indication: Product used for unknown indication
     Dosage: 19.66 MICROGRAM DAILY; 1-0-1-0
  6. TORSEMIDE [Concomitant]
     Active Substance: TORSEMIDE
     Indication: Product used for unknown indication
     Dosage: .5 DOSAGE FORMS DAILY; 10 MG, 0.5-0-0-0
  7. OPIPRAMOL [Concomitant]
     Active Substance: OPIPRAMOL
     Indication: Product used for unknown indication
     Dosage: 100 MILLIGRAM DAILY; 1-1-0-0
  8. FENOTEROL [Concomitant]
     Active Substance: FENOTEROL
     Indication: Product used for unknown indication
     Dosage: 8 DOSAGE FORMS DAILY; 100 MCG, 2-2-2-2

REACTIONS (11)
  - Electrocardiogram abnormal [Unknown]
  - Anaemia [Unknown]
  - Loss of consciousness [Unknown]
  - Dyspnoea [Unknown]
  - Cyanosis [Unknown]
  - Tachypnoea [Unknown]
  - Tachycardia [Unknown]
  - Acute respiratory failure [Unknown]
  - Systemic infection [Unknown]
  - Condition aggravated [Unknown]
  - Oedema peripheral [Unknown]
